FAERS Safety Report 16893356 (Version 1)
Quarter: 2019Q4

REPORT INFORMATION
  Report Type: Spontaneous
  Country: JP (occurrence: JP)
  Receive Date: 20191008
  Receipt Date: 20191008
  Transmission Date: 20200122
  Serious: Yes (Other)
  Sender: FDA-Public Use
  Company Number: JP-TEVA-2019-JP-006229J

PATIENT
  Age: 86 Year
  Sex: Female

DRUGS (1)
  1. TAKEPRON OD TABLETS 15 [Suspect]
     Active Substance: LANSOPRAZOLE
     Indication: GASTROOESOPHAGEAL REFLUX DISEASE
     Dosage: 30 MILLIGRAM DAILY;
     Route: 048
     Dates: start: 20190415

REACTIONS (1)
  - Internal haemorrhage [Recovering/Resolving]

NARRATIVE: CASE EVENT DATE: 20190925
